FAERS Safety Report 8263941-3 (Version None)
Quarter: 2012Q2

REPORT INFORMATION
  Report Type: 
  Country: None (occurrence: None)
  Receive Date: 20120406
  Receipt Date: 20120329
  Transmission Date: 20120825
  Serious: Yes (Hospitalization)
  Sender: FDA-Public Use
  Company Number: US-BIOGENIDEC-2012BI008642

PATIENT
  Age: 45 Year
  Sex: Female

DRUGS (4)
  1. NEURONTIN [Concomitant]
     Indication: HEADACHE
  2. TYSABRI [Suspect]
     Indication: MULTIPLE SCLEROSIS
     Route: 042
     Dates: start: 20060911
  3. TYSABRI [Suspect]
     Route: 042
  4. BACLOFEN [Concomitant]
     Indication: MUSCLE SPASTICITY

REACTIONS (1)
  - OVARIAN CYST [None]
